FAERS Safety Report 13176614 (Version 1)
Quarter: 2017Q1

REPORT INFORMATION
  Report Type: Spontaneous
  Country: US (occurrence: US)
  Receive Date: 20170201
  Receipt Date: 20170201
  Transmission Date: 20170428
  Serious: Yes (Hospitalization, Other)
  Sender: FDA-Public Use
  Company Number: US-PFIZER INC-2002059139

PATIENT
  Age: 47 Year
  Sex: Female
  Weight: 68 kg

DRUGS (13)
  1. SINEQUAN [Suspect]
     Active Substance: DOXEPIN HYDROCHLORIDE
     Indication: INSOMNIA
  2. ACIPHEX [Concomitant]
     Active Substance: RABEPRAZOLE SODIUM
  3. CALCIUM [Concomitant]
     Active Substance: CALCIUM
  4. SENNA FRUIT [Concomitant]
  5. LACTULOSE. [Concomitant]
     Active Substance: LACTULOSE
  6. ZYRTEC [Concomitant]
     Active Substance: CETIRIZINE HYDROCHLORIDE
  7. VERAPAMIL HCL [Concomitant]
     Active Substance: VERAPAMIL HYDROCHLORIDE
  8. IMDUR [Concomitant]
     Active Substance: ISOSORBIDE MONONITRATE
  9. ZOCOR [Concomitant]
     Active Substance: SIMVASTATIN
  10. FLECAINIDE [Concomitant]
     Active Substance: FLECAINIDE
  11. SINEQUAN [Suspect]
     Active Substance: DOXEPIN HYDROCHLORIDE
     Indication: PAIN
     Dosage: 400 MG, DAILY
     Route: 048
  12. PRILOSEC [Concomitant]
     Active Substance: OMEPRAZOLE MAGNESIUM
  13. OXYGEN. [Concomitant]
     Active Substance: OXYGEN

REACTIONS (9)
  - Dizziness [Unknown]
  - Accidental overdose [Recovered/Resolved]
  - Cognitive disorder [Not Recovered/Not Resolved]
  - Pain [Not Recovered/Not Resolved]
  - Generalised tonic-clonic seizure [Recovered/Resolved]
  - Mental impairment [Not Recovered/Not Resolved]
  - Drug administration error [Unknown]
  - Memory impairment [Not Recovered/Not Resolved]
  - Dry mouth [Unknown]

NARRATIVE: CASE EVENT DATE: 2002
